FAERS Safety Report 22108401 (Version 1)
Quarter: 2023Q1

REPORT INFORMATION
  Report Type: Spontaneous
  Country: US (occurrence: US)
  Receive Date: 20230317
  Receipt Date: 20230317
  Transmission Date: 20230417
  Serious: No
  Sender: FDA-Public Use
  Company Number: US-ALVOGEN-2022-ALVOGEN-118559

PATIENT
  Sex: Female

DRUGS (1)
  1. ESTRADIOL [Suspect]
     Active Substance: ESTRADIOL
     Indication: Prophylaxis urinary tract infection
     Dates: start: 20220217, end: 20220221

REACTIONS (2)
  - Vulvovaginal burning sensation [Recovered/Resolved]
  - Condition aggravated [Recovered/Resolved]
